FAERS Safety Report 5953315-X (Version None)
Quarter: 2008Q4

REPORT INFORMATION
  Report Type: 
  Country: None (occurrence: None)
  Receive Date: 20081114
  Receipt Date: 20081111
  Transmission Date: 20090506
  Serious: Yes (Hospitalization)
  Sender: FDA-Public Use
  Company Number: KR-JNJFOC-20081103175

PATIENT
  Age: 13 Year
  Sex: Male

DRUGS (2)
  1. CONCERTA [Suspect]
     Route: 048
  2. CONCERTA [Suspect]
     Indication: ATTENTION DEFICIT/HYPERACTIVITY DISORDER
     Dosage: PATIENT TOOK THE TABLET FOR 7 MONTHS.
     Route: 048

REACTIONS (1)
  - COLITIS ULCERATIVE [None]
